FAERS Safety Report 23593593 (Version 2)
Quarter: 2024Q1

REPORT INFORMATION
  Report Type: Report from Study
  Country: US (occurrence: US)
  Receive Date: 20240304
  Receipt Date: 20240307
  Transmission Date: 20240410
  Serious: Yes (Other)
  Sender: FDA-Public Use
  Company Number: US-ABBVIE-5659929

PATIENT
  Sex: Female
  Weight: 139 kg

DRUGS (2)
  1. IMBRUVICA [Suspect]
     Active Substance: IBRUTINIB
     Indication: Chronic lymphocytic leukaemia
     Dosage: FORM STRENGTH WAS 420 MILLIGRAM.
     Route: 048
     Dates: start: 201801, end: 202309
  2. IMBRUVICA [Suspect]
     Active Substance: IBRUTINIB
     Indication: Chronic lymphocytic leukaemia
     Dosage: FORM STRENGTH WAS 420 MILLIGRAM.
     Route: 048

REACTIONS (13)
  - Tendon rupture [Recovering/Resolving]
  - Post-acute COVID-19 syndrome [Recovering/Resolving]
  - Device related infection [Unknown]
  - Impaired driving ability [Recovered/Resolved]
  - Procedural pain [Unknown]
  - Vomiting [Recovered/Resolved]
  - Nausea [Recovered/Resolved]
  - Gastroenteritis viral [Recovered/Resolved]
  - Diarrhoea [Recovered/Resolved]
  - Depressed mood [Unknown]
  - Gait inability [Recovered/Resolved]
  - Localised infection [Recovered/Resolved]
  - Loss of personal independence in daily activities [Unknown]

NARRATIVE: CASE EVENT DATE: 20210101
